FAERS Safety Report 9198503 (Version 1)
Quarter: 2013Q1

REPORT INFORMATION
  Report Type: Spontaneous
  Country: US (occurrence: None)
  Receive Date: 20130327
  Receipt Date: 20130327
  Transmission Date: 20140127
  Serious: Yes (Hospitalization)
  Sender: FDA-Public Use
  Company Number: None

PATIENT
  Age: 83 Year
  Sex: Male
  Weight: 76 kg

DRUGS (11)
  1. AMIODARONE [Suspect]
     Indication: ATRIAL FIBRILLATION
     Dosage: 0.5 MG/ML  CONTINUOUS  IV DRIP
     Route: 041
     Dates: start: 20120718, end: 20120723
  2. METOPROLOL XL [Concomitant]
  3. LORAZEPAM [Concomitant]
  4. ZOLPIDEM [Concomitant]
  5. CITALOPRAM [Concomitant]
  6. HYDROCODONE/ACETAMINOPHEN [Concomitant]
  7. ASCORBIC ACID [Concomitant]
  8. CYANOCOBALAMIN [Concomitant]
  9. FERROUS SULFATE [Concomitant]
  10. FUROSEMIDE [Concomitant]
  11. LEVOFLOXACIN [Concomitant]

REACTIONS (5)
  - Infusion site extravasation [None]
  - Leukocytosis [None]
  - Cellulitis [None]
  - Abscess [None]
  - Thrombophlebitis septic [None]
